FAERS Safety Report 18950937 (Version 1)
Quarter: 2021Q1

REPORT INFORMATION
  Report Type: Spontaneous
  Country: US (occurrence: US)
  Receive Date: 20210228
  Receipt Date: 20210228
  Transmission Date: 20210420
  Serious: No
  Sender: FDA-Public Use
  Company Number: US-ROCHE-2698750

PATIENT
  Sex: Female

DRUGS (18)
  1. ALPRAZOLAM. [Concomitant]
     Active Substance: ALPRAZOLAM
  2. ATORVASTATIN CALCIUM. [Concomitant]
     Active Substance: ATORVASTATIN CALCIUM
  3. OXYCODONE AND ACETAMINOPHEN [Concomitant]
     Active Substance: ACETAMINOPHEN\OXYCODONE HYDROCHLORIDE
  4. XOLAIR [Suspect]
     Active Substance: OMALIZUMAB
  5. AMOXICILLIN. [Concomitant]
     Active Substance: AMOXICILLIN
  6. CICLOPIROX TOPICAL [Concomitant]
  7. XOLAIR [Suspect]
     Active Substance: OMALIZUMAB
  8. IBUPROFEN. [Concomitant]
     Active Substance: IBUPROFEN
  9. CEPHALEXIN. [Concomitant]
     Active Substance: CEPHALEXIN
  10. DIAZEPAM. [Concomitant]
     Active Substance: DIAZEPAM
  11. MONTELUKAST SODIUM. [Concomitant]
     Active Substance: MONTELUKAST SODIUM
  12. OMEPRAZOLE. [Concomitant]
     Active Substance: OMEPRAZOLE
  13. CHLORHEXIDINE GLUCONATE. [Concomitant]
     Active Substance: CHLORHEXIDINE GLUCONATE
  14. NASONEX [Concomitant]
     Active Substance: MOMETASONE FUROATE
  15. DETROL LA [Concomitant]
     Active Substance: TOLTERODINE TARTRATE
  16. XOLAIR [Suspect]
     Active Substance: OMALIZUMAB
     Indication: ASTHMA
     Route: 058
     Dates: start: 20190509
  17. EPIPEN [Concomitant]
     Active Substance: EPINEPHRINE
  18. ONDANSETRON ODT [Concomitant]
     Active Substance: ONDANSETRON

REACTIONS (2)
  - Choking [Not Recovered/Not Resolved]
  - Cough [Not Recovered/Not Resolved]
